FAERS Safety Report 18534619 (Version 3)
Quarter: 2025Q1

REPORT INFORMATION
  Report Type: Spontaneous
  Country: US (occurrence: US)
  Receive Date: 20201123
  Receipt Date: 20250327
  Transmission Date: 20250408
  Serious: Yes (Hospitalization, Other)
  Sender: JOHNSON AND JOHNSON
  Company Number: US-JNJFOC-20201126494

PATIENT
  Age: 78 Year
  Sex: Male
  Weight: 76.2 kg

DRUGS (13)
  1. ZYTIGA [Suspect]
     Active Substance: ABIRATERONE ACETATE
     Indication: Prostate cancer metastatic
     Route: 048
     Dates: start: 20201008, end: 2020
  2. ZYTIGA [Suspect]
     Active Substance: ABIRATERONE ACETATE
     Route: 048
     Dates: start: 20201104, end: 20201105
  3. ABEMACICLIB [Suspect]
     Active Substance: ABEMACICLIB
     Indication: Prostate cancer metastatic
     Route: 065
     Dates: end: 20201008
  4. PREDNISONE [Concomitant]
     Active Substance: PREDNISONE
     Indication: Prostate cancer metastatic
     Route: 048
  5. ASPIRIN [Concomitant]
     Active Substance: ASPIRIN
     Indication: Prostate cancer metastatic
     Route: 065
  6. ATORVASTATIN CALCIUM [Concomitant]
     Active Substance: ATORVASTATIN CALCIUM
     Route: 065
     Dates: start: 20190424
  7. CALCIUM [Concomitant]
     Active Substance: CALCIUM
     Route: 065
  8. CELECOXIB [Concomitant]
     Active Substance: CELECOXIB
     Route: 065
     Dates: start: 20190514
  9. DOCUSATE SODIUM [Concomitant]
     Active Substance: DOCUSATE SODIUM
     Route: 065
  10. COENZYME Q10 [Concomitant]
     Active Substance: DIETARY SUPPLEMENT\UBIDECARENONE
     Route: 065
     Dates: start: 20140725
  11. TEMAZEPAM [Concomitant]
     Active Substance: TEMAZEPAM
     Route: 065
     Dates: start: 20200914
  12. MIRALAX [Concomitant]
     Active Substance: POLYETHYLENE GLYCOL 3350
     Route: 065
     Dates: start: 20200618
  13. RISPERIDONE [Concomitant]
     Active Substance: RISPERIDONE
     Route: 065
     Dates: start: 20190916

REACTIONS (6)
  - Arthralgia [Unknown]
  - Asthenia [Unknown]
  - Fall [Recovered/Resolved]
  - Urinary tract infection bacterial [Unknown]
  - Fistula [Unknown]
  - Symphysiolysis [Unknown]

NARRATIVE: CASE EVENT DATE: 20201001
